FAERS Safety Report 14760125 (Version 3)
Quarter: 2018Q3

REPORT INFORMATION
  Report Type: Spontaneous
  Country: US (occurrence: US)
  Receive Date: 20180413
  Receipt Date: 20180710
  Transmission Date: 20181010
  Serious: No
  Sender: FDA-Public Use
  Company Number: US-VIFOR (INTERNATIONAL) INC.-VIT-2016-08589

PATIENT
  Age: 71 Year
  Sex: Female

DRUGS (14)
  1. SODIUM BICARBONATE. [Concomitant]
     Active Substance: SODIUM BICARBONATE
  2. DEMECLOCYCLINE HYDROCHLORIDE. [Concomitant]
     Active Substance: DEMECLOCYCLINE HYDROCHLORIDE
  3. VELTASSA [Suspect]
     Active Substance: PATIROMER
     Route: 048
     Dates: start: 20161012
  4. LORAZEPAM. [Concomitant]
     Active Substance: LORAZEPAM
  5. SIMVASTATIN. [Concomitant]
     Active Substance: SIMVASTATIN
  6. GABAPENTIN. [Concomitant]
     Active Substance: GABAPENTIN
  7. AMLODIPINE BESILATE [Concomitant]
     Active Substance: AMLODIPINE BESYLATE
  8. CEFALEXIN [Concomitant]
     Active Substance: CEPHALEXIN
  9. VELTASSA [Suspect]
     Active Substance: PATIROMER
     Indication: HYPERKALAEMIA
     Route: 048
     Dates: start: 20161010
  10. TRAMADOL HYDROCHLORIDE. [Concomitant]
     Active Substance: TRAMADOL HYDROCHLORIDE
  11. OMEPRAZOLE. [Concomitant]
     Active Substance: OMEPRAZOLE
  12. PARACETAMOL~~HYDROCODONE [Concomitant]
  13. METOPROLOL TARTRATE. [Concomitant]
     Active Substance: METOPROLOL TARTRATE
  14. AMITIZA [Concomitant]
     Active Substance: LUBIPROSTONE

REACTIONS (5)
  - Dry skin [Not Recovered/Not Resolved]
  - Skin exfoliation [Not Recovered/Not Resolved]
  - Skin discolouration [Not Recovered/Not Resolved]
  - Inappropriate schedule of drug administration [Unknown]
  - Burning sensation [Unknown]

NARRATIVE: CASE EVENT DATE: 201611
